FAERS Safety Report 7441941-0 (Version None)
Quarter: 2011Q2

REPORT INFORMATION
  Report Type: 
  Country: None (occurrence: None)
  Receive Date: 20110428
  Receipt Date: 20100503
  Transmission Date: 20111010
  Serious: No
  Sender: FDA-Public Use
  Company Number: US-ASTRAZENECA-2010SE19969

PATIENT
  Sex: Female

DRUGS (4)
  1. TOPAMAX [Concomitant]
     Indication: MIGRAINE
  2. ZOMIG [Suspect]
     Indication: MIGRAINE
     Route: 048
     Dates: start: 20080101
  3. WELLBUTRIN [Concomitant]
  4. 5HTP [Concomitant]
     Indication: INSOMNIA

REACTIONS (2)
  - FEELING ABNORMAL [None]
  - ANXIETY [None]
